FAERS Safety Report 8485948-3 (Version None)
Quarter: 2012Q3

REPORT INFORMATION
  Report Type: 
  Country: None (occurrence: None)
  Receive Date: 20120703
  Receipt Date: 20120622
  Transmission Date: 20120928
  Serious: Yes (Hospitalization)
  Sender: FDA-Public Use
  Company Number: US-VERTEX PHARMACEUTICALS INC.-AE-2012-009447

PATIENT
  Sex: Male

DRUGS (6)
  1. INCIVEK [Suspect]
     Indication: HEPATITIS C
     Route: 048
     Dates: start: 20120316, end: 20120508
  2. PEGASYS [Concomitant]
     Indication: HEPATITIS C
     Dates: start: 20120316, end: 20120508
  3. RIBAVIRIN [Concomitant]
     Indication: HEPATITIS C
     Dates: start: 20120316, end: 20120508
  4. RIBAVIRIN [Concomitant]
     Dates: start: 20120515
  5. INCIVEK [Suspect]
     Route: 048
     Dates: start: 20120515, end: 20120615
  6. PEGASYS [Concomitant]
     Dates: start: 20120515

REACTIONS (1)
  - STAPHYLOCOCCAL INFECTION [None]
